FAERS Safety Report 10069184 (Version 1)
Quarter: 2014Q2

REPORT INFORMATION
  Report Type: Spontaneous
  Country: US (occurrence: US)
  Receive Date: 20140409
  Receipt Date: 20140409
  Transmission Date: 20141212
  Serious: No
  Sender: FDA-Public Use
  Company Number: US-ASTELLAS-2014US000239

PATIENT
  Sex: Female
  Weight: 70 kg

DRUGS (1)
  1. PROTOPIC [Suspect]
     Indication: PROPHYLAXIS AGAINST GRAFT VERSUS HOST DISEASE
     Dosage: 1 APPLICATION, UID/QD
     Route: 061
     Dates: start: 20131209

REACTIONS (1)
  - Off label use [Unknown]
